FAERS Safety Report 25114362 (Version 1)
Quarter: 2025Q1

REPORT INFORMATION
  Report Type: Spontaneous
  Country: FR (occurrence: FR)
  Receive Date: 20250324
  Receipt Date: 20250324
  Transmission Date: 20250408
  Serious: Yes (Other)
  Sender: AMGEN
  Company Number: FR-AMGEN-FRASP2025055231

PATIENT
  Age: 12 Year
  Sex: Female
  Weight: 60 kg

DRUGS (6)
  1. ROMIPLOSTIM [Suspect]
     Active Substance: ROMIPLOSTIM
     Indication: Immune thrombocytopenia
     Route: 065
  2. CORTICOSTEROID NOS [Concomitant]
     Active Substance: CORTICOSTEROID NOS
     Dosage: 0.35 MILLIGRAM/KILOGRAM, QD
  3. CORTICOSTEROID NOS [Concomitant]
     Active Substance: CORTICOSTEROID NOS
     Dosage: 0.1 MILLIGRAM/KILOGRAM, QD
  4. AZATHIOPRINE [Concomitant]
     Active Substance: AZATHIOPRINE
  5. RITUXIMAB [Concomitant]
     Active Substance: RITUXIMAB
  6. SIROLIMUS [Concomitant]
     Active Substance: SIROLIMUS

REACTIONS (6)
  - Gastroenteritis shigella [Unknown]
  - Bronchiectasis [Unknown]
  - Lymphopenia [Unknown]
  - Lung opacity [Unknown]
  - Alopecia [Unknown]
  - Herpes zoster [Unknown]
